FAERS Safety Report 13989599 (Version 1)
Quarter: 2017Q3

REPORT INFORMATION
  Report Type: Spontaneous
  Country: DE (occurrence: DE)
  Receive Date: 20170920
  Receipt Date: 20170920
  Transmission Date: 20171128
  Serious: Yes (Other)
  Sender: FDA-Public Use
  Company Number: DE-ROCHE-1945501

PATIENT
  Age: 58 Year
  Sex: Female
  Weight: 80 kg

DRUGS (22)
  1. XELODA [Suspect]
     Active Substance: CAPECITABINE
     Route: 065
  2. XELODA [Suspect]
     Active Substance: CAPECITABINE
     Dosage: ACCORDING TO ONCOLOGIST (NOS)
     Route: 065
     Dates: start: 201706
  3. HERCEPTIN [Suspect]
     Active Substance: TRASTUZUMAB
     Indication: BREAST CANCER METASTATIC
     Route: 065
  4. FLUOXETIN [Concomitant]
     Active Substance: FLUOXETINE HYDROCHLORIDE
     Route: 065
  5. TYVERB [Concomitant]
     Active Substance: LAPATINIB
     Route: 065
  6. TYVERB [Concomitant]
     Active Substance: LAPATINIB
     Dosage: ACCORDING TO GYNAECOLOGIST (NOS)
     Route: 065
     Dates: start: 201706
  7. KADCYLA [Suspect]
     Active Substance: ADO-TRASTUZUMAB EMTANSINE
     Indication: BREAST CANCER METASTATIC
     Dosage: CYCLICAL
     Route: 065
     Dates: start: 20161202, end: 20170428
  8. METFORMIN [Concomitant]
     Active Substance: METFORMIN HYDROCHLORIDE
     Route: 065
  9. XGEVA [Concomitant]
     Active Substance: DENOSUMAB
     Route: 058
  10. FUROSEMID [Concomitant]
     Active Substance: FUROSEMIDE
     Route: 065
  11. IDEOS [Concomitant]
     Active Substance: CALCIUM CARBONATE\CHOLECALCIFEROL
     Dosage: 500MG/400IU 2X/DAY
     Route: 065
     Dates: start: 201706
  12. XELODA [Suspect]
     Active Substance: CAPECITABINE
     Indication: BREAST CANCER METASTATIC
     Route: 065
  13. LISINOPRIL. [Concomitant]
     Active Substance: LISINOPRIL
     Route: 065
  14. PANTOPRAZOL [Concomitant]
     Active Substance: PANTOPRAZOLE SODIUM
     Route: 065
  15. LEVETIRACETAM. [Concomitant]
     Active Substance: LEVETIRACETAM
     Route: 065
  16. NOVAMINSULFON [Concomitant]
     Active Substance: METAMIZOLE
     Dosage: 4-8 TIMES PER DAY
     Route: 065
     Dates: end: 201706
  17. DEXAMETHASON [Concomitant]
     Active Substance: DEXAMETHASONE
     Route: 065
  18. PERJETA [Suspect]
     Active Substance: PERTUZUMAB
     Indication: BREAST CANCER METASTATIC
     Route: 065
  19. IDEOS [Concomitant]
     Active Substance: CALCIUM CARBONATE\CHOLECALCIFEROL
     Route: 065
  20. PLASTULEN [Concomitant]
     Dosage: EVERY SECOND DAY
     Route: 065
  21. PLASTULEN [Concomitant]
     Route: 065
     Dates: start: 201706
  22. TORASEMID [Concomitant]
     Active Substance: TORSEMIDE
     Route: 065

REACTIONS (3)
  - Hepatic cirrhosis [Unknown]
  - Liver function test increased [Not Recovered/Not Resolved]
  - Anaemia [Unknown]

NARRATIVE: CASE EVENT DATE: 20170428
